FAERS Safety Report 8481234-6 (Version None)
Quarter: 2012Q2

REPORT INFORMATION
  Report Type: 
  Country: None (occurrence: None)
  Receive Date: 20120626
  Receipt Date: 20120626
  Transmission Date: 20120825
  Serious: Yes (Hospitalization)
  Sender: FDA-Public Use
  Company Number: None

PATIENT
  Age: 50 Year
  Sex: Male
  Weight: 116.7 kg

DRUGS (1)
  1. PIPERACILLIN AND TAZOBACTAM [Suspect]
     Indication: POSTOPERATIVE WOUND INFECTION
     Dosage: 3.375 GM TID IV
     Route: 042
     Dates: start: 20111201, end: 20120221

REACTIONS (21)
  - CHILLS [None]
  - HEADACHE [None]
  - EYE PAIN [None]
  - FLUID OVERLOAD [None]
  - ABDOMINAL PAIN [None]
  - PRODUCTIVE COUGH [None]
  - RENAL FAILURE ACUTE [None]
  - ABDOMINAL DISTENSION [None]
  - DYSPNOEA [None]
  - RENAL TUBULAR NECROSIS [None]
  - URINARY CASTS [None]
  - OBSTRUCTION [None]
  - METABOLIC ACIDOSIS [None]
  - NO THERAPEUTIC RESPONSE [None]
  - FLUID INTAKE REDUCED [None]
  - TUBULOINTERSTITIAL NEPHRITIS [None]
  - INFREQUENT BOWEL MOVEMENTS [None]
  - HYPOPHAGIA [None]
  - PYREXIA [None]
  - VISION BLURRED [None]
  - RENAL IMPAIRMENT [None]
